FAERS Safety Report 19356099 (Version 1)
Quarter: 2021Q2

REPORT INFORMATION
  Report Type: Spontaneous
  Country: US (occurrence: US)
  Receive Date: 20210602
  Receipt Date: 20210602
  Transmission Date: 20210717
  Serious: No
  Sender: FDA-Public Use
  Company Number: US-GRANULES-US-2021GRASPO00325

PATIENT
  Age: 62 Year
  Sex: Male

DRUGS (3)
  1. ONDANSETRON [Interacting]
     Active Substance: ONDANSETRON
     Indication: NAUSEA
     Route: 048
  2. IBUPROFEN. [Suspect]
     Active Substance: IBUPROFEN
     Indication: PRODUCT USED FOR UNKNOWN INDICATION
     Route: 048
  3. COLD?EEZE [ALLIUM SATIVUM;ECHINACEA SPP.] [Suspect]
     Active Substance: HERBALS\HOMEOPATHICS
     Indication: PRODUCT USED FOR UNKNOWN INDICATION
     Route: 065

REACTIONS (1)
  - Nausea [Unknown]
